FAERS Safety Report 13503881 (Version 6)
Quarter: 2017Q3

REPORT INFORMATION
  Report Type: Spontaneous
  Country: KR (occurrence: KR)
  Receive Date: 20170502
  Receipt Date: 20170801
  Transmission Date: 20171127
  Serious: Yes (Hospitalization, Other)
  Sender: FDA-Public Use
  Company Number: KR-009507513-1704KOR015257

PATIENT
  Age: 51 Year
  Sex: Female
  Weight: 54.1 kg

DRUGS (61)
  1. ADRIAMYCIN [Concomitant]
     Active Substance: DOXORUBICIN HYDROCHLORIDE
     Dosage: 52.8 MG, ONCE (CYCLE 6)
     Route: 042
     Dates: start: 20170125, end: 20170125
  2. ENDOXAN [Concomitant]
     Active Substance: CYCLOPHOSPHAMIDE
     Dosage: 1170 MG, ONCE (CYCLE 3)
     Route: 042
     Dates: start: 20161122, end: 20161122
  3. MABTHERA [Concomitant]
     Active Substance: RITUXIMAB
     Indication: CHEMOTHERAPY
     Dosage: 600 MG, ONCE (CYCLE 1)
     Route: 042
     Dates: start: 20161012, end: 20161012
  4. MABTHERA [Concomitant]
     Active Substance: RITUXIMAB
     Dosage: 600 MG, ONCE (CYCLE 2)
     Route: 042
     Dates: start: 20161101, end: 20161101
  5. MABTHERA [Concomitant]
     Active Substance: RITUXIMAB
     Dosage: 600 MG, ONCE (CYCLE 5)
     Route: 042
     Dates: start: 20170104, end: 20170104
  6. LASIX [Concomitant]
     Active Substance: FUROSEMIDE
     Indication: PROPHYLAXIS
     Dosage: 20 MG, QD (STRENGTH: 20MG/ML)
     Route: 042
     Dates: start: 20161012, end: 20161015
  7. MACPERAN [Concomitant]
     Active Substance: METOCLOPRAMIDE HYDROCHLORIDE
     Dosage: 10 MG, QD
     Route: 042
     Dates: start: 20161014, end: 20161016
  8. NORZYME [Concomitant]
     Indication: PROPHYLAXIS
     Dosage: 1 CAPSULE, TID
     Route: 048
     Dates: start: 20161009, end: 20161012
  9. ZYPREXA [Concomitant]
     Active Substance: OLANZAPINE
     Indication: PAIN PROPHYLAXIS
     Dosage: 0.5 TABLET, QD
     Route: 048
     Dates: start: 20161014, end: 20161128
  10. EMEND (FOSAPREPITANT DIMEGLUMINE) [Suspect]
     Active Substance: FOSAPREPITANT DIMEGLUMINE
     Dosage: 150 MG, ONCE
     Route: 042
     Dates: start: 20161213, end: 20161213
  11. MABTHERA [Concomitant]
     Active Substance: RITUXIMAB
     Dosage: 600 MG, ONCE (CYCLE 3)
     Route: 042
     Dates: start: 20161122, end: 20161122
  12. MABTHERA [Concomitant]
     Active Substance: RITUXIMAB
     Dosage: 600 MG, ONCE (CYCLE 6)
     Route: 042
     Dates: start: 20170125, end: 20170125
  13. VINCRISTINE SULFATE. [Concomitant]
     Active Substance: VINCRISTINE SULFATE
     Dosage: 2 MG, ONCE (CYCLE 4)
     Route: 042
     Dates: start: 20161213, end: 20161213
  14. ONDANSETRON HYDROCHLORIDE. [Concomitant]
     Active Substance: ONDANSETRON HYDROCHLORIDE
     Dosage: 8 MG, QD
     Route: 042
     Dates: start: 20170126, end: 20170130
  15. PANTOLINE TABLETS [Concomitant]
     Dosage: 20 MG, QD
     Route: 048
     Dates: start: 20170125, end: 20170129
  16. SOLONDO [Concomitant]
     Active Substance: PREDNISOLONE
     Dosage: 20 TABLET, QD
     Route: 048
     Dates: start: 20161122, end: 20161126
  17. SOLONDO [Concomitant]
     Active Substance: PREDNISOLONE
     Dosage: 20 TABLET, QD
     Route: 048
     Dates: start: 20170104, end: 20170108
  18. ENDOXAN [Concomitant]
     Active Substance: CYCLOPHOSPHAMIDE
     Dosage: 1170 MG, ONCE (CYCLE 5)
     Route: 042
     Dates: start: 20170104, end: 20170104
  19. VINCRISTINE SULFATE. [Concomitant]
     Active Substance: VINCRISTINE SULFATE
     Indication: CHEMOTHERAPY
     Dosage: 2 MG, ONCE (CYCLE 1)
     Route: 042
     Dates: start: 20161013, end: 20161013
  20. ALOXI [Concomitant]
     Active Substance: PALONOSETRON HYDROCHLORIDE
     Dosage: 0.25 MG, ONCE
     Route: 042
     Dates: start: 20161213, end: 20161213
  21. ZYLORIC [Concomitant]
     Active Substance: ALLOPURINOL
     Indication: PROPHYLAXIS
     Dosage: 100 MG (1 TABLET), TID
     Route: 048
     Dates: start: 20161010, end: 20161012
  22. EMEND (FOSAPREPITANT DIMEGLUMINE) [Suspect]
     Active Substance: FOSAPREPITANT DIMEGLUMINE
     Indication: PROPHYLAXIS OF NAUSEA AND VOMITING
     Dosage: 150 MG, ONCE
     Route: 042
     Dates: start: 20161012, end: 20161012
  23. EMEND (FOSAPREPITANT DIMEGLUMINE) [Suspect]
     Active Substance: FOSAPREPITANT DIMEGLUMINE
     Dosage: 150 MG, ONCE
     Route: 042
     Dates: start: 20170104, end: 20170104
  24. ADRIAMYCIN [Concomitant]
     Active Substance: DOXORUBICIN HYDROCHLORIDE
     Dosage: 52.8 MG, ONCE (CYCLE 2)
     Route: 042
     Dates: start: 20161102, end: 20161102
  25. ENDOXAN [Concomitant]
     Active Substance: CYCLOPHOSPHAMIDE
     Dosage: 1170 MG, ONCE (CYCLE 2)
     Route: 042
     Dates: start: 20161101, end: 20161101
  26. VINCRISTINE SULFATE. [Concomitant]
     Active Substance: VINCRISTINE SULFATE
     Dosage: 2 MG, ONCE (CYCLE 3)
     Route: 042
     Dates: start: 20161122, end: 20161122
  27. ALOXI [Concomitant]
     Active Substance: PALONOSETRON HYDROCHLORIDE
     Dosage: 0.25 MG, ONCE
     Route: 042
     Dates: start: 20161122, end: 20161122
  28. EMEND (FOSAPREPITANT DIMEGLUMINE) [Suspect]
     Active Substance: FOSAPREPITANT DIMEGLUMINE
     Dosage: 150 MG, ONCE
     Route: 042
     Dates: start: 20161101, end: 20161101
  29. EMEND (FOSAPREPITANT DIMEGLUMINE) [Suspect]
     Active Substance: FOSAPREPITANT DIMEGLUMINE
     Dosage: 150 MG, ONCE
     Route: 042
     Dates: start: 20161122, end: 20161122
  30. EMEND (FOSAPREPITANT DIMEGLUMINE) [Suspect]
     Active Substance: FOSAPREPITANT DIMEGLUMINE
     Dosage: 150 MG, ONCE
     Route: 042
     Dates: start: 20170125, end: 20170125
  31. ADRIAMYCIN [Concomitant]
     Active Substance: DOXORUBICIN HYDROCHLORIDE
     Dosage: 52.8 MG, ONCE (CYCLE 4)
     Route: 042
     Dates: start: 20161213, end: 20161213
  32. ALOXI [Concomitant]
     Active Substance: PALONOSETRON HYDROCHLORIDE
     Indication: ANTIEMETIC SUPPORTIVE CARE
     Dosage: 0.25 MG, ONCE
     Route: 042
     Dates: start: 20161012, end: 20161012
  33. ALOXI [Concomitant]
     Active Substance: PALONOSETRON HYDROCHLORIDE
     Dosage: 0.25 MG, ONCE
     Route: 042
     Dates: start: 20170125, end: 20170125
  34. ONDANSETRON HYDROCHLORIDE. [Concomitant]
     Active Substance: ONDANSETRON HYDROCHLORIDE
     Indication: ANTIEMETIC SUPPORTIVE CARE
     Dosage: 8 MG, QD
     Route: 042
     Dates: start: 20161014, end: 20161024
  35. LASIX [Concomitant]
     Active Substance: FUROSEMIDE
     Dosage: 10 MG, BID (STRENGTH: 20MG/ML)
     Route: 042
     Dates: start: 20161021, end: 20161021
  36. SOLETON [Concomitant]
     Active Substance: ZALTOPROFEN
     Indication: PAIN PROPHYLAXIS
     Dosage: 80 MG (1 TABLET), TID
     Route: 048
     Dates: start: 20161009, end: 20161012
  37. SOLONDO [Concomitant]
     Active Substance: PREDNISOLONE
     Indication: ANTIEMETIC SUPPORTIVE CARE
     Dosage: 20 TABLET, ONCE
     Route: 048
     Dates: start: 20161015, end: 20161015
  38. SOLONDO [Concomitant]
     Active Substance: PREDNISOLONE
     Dosage: 20 TABLET, QD
     Route: 048
     Dates: start: 20161213, end: 20161217
  39. ADRIAMYCIN [Concomitant]
     Active Substance: DOXORUBICIN HYDROCHLORIDE
     Dosage: 52.8 MG, ONCE (CYCLE 3)
     Route: 042
     Dates: start: 20161122, end: 20161122
  40. MABTHERA [Concomitant]
     Active Substance: RITUXIMAB
     Dosage: 600 MG, ONCE (CYCLE 4)
     Route: 042
     Dates: start: 20161213, end: 20161213
  41. VINCRISTINE SULFATE. [Concomitant]
     Active Substance: VINCRISTINE SULFATE
     Dosage: 2 MG, ONCE (CYCLE 2)
     Route: 042
     Dates: start: 20161102, end: 20161102
  42. MACPERAN [Concomitant]
     Active Substance: METOCLOPRAMIDE HYDROCHLORIDE
     Indication: PROPHYLAXIS OF NAUSEA AND VOMITING
     Dosage: 10 MG, ONCE
     Route: 042
     Dates: start: 20161011, end: 20161011
  43. MACPERAN [Concomitant]
     Active Substance: METOCLOPRAMIDE HYDROCHLORIDE
     Dosage: 10 MG, QD
     Route: 042
     Dates: start: 20170105, end: 20170110
  44. ZYPREXA [Concomitant]
     Active Substance: OLANZAPINE
     Dosage: 5 MG (1 TABLET), QD
     Route: 048
     Dates: start: 20170126, end: 20170201
  45. PANTOLINE TABLETS [Concomitant]
     Dosage: 20 MG, QD
     Route: 048
     Dates: start: 20170104, end: 20170110
  46. SOLONDO [Concomitant]
     Active Substance: PREDNISOLONE
     Dosage: 10 TABLET, QD
     Route: 048
     Dates: start: 20161101, end: 20161105
  47. ENDOXAN [Concomitant]
     Active Substance: CYCLOPHOSPHAMIDE
     Dosage: 1170 MG, ONCE (CYCLE 4)
     Route: 042
     Dates: start: 20161213, end: 20161213
  48. VINCRISTINE SULFATE. [Concomitant]
     Active Substance: VINCRISTINE SULFATE
     Dosage: 2 MG, ONCE (CYCLE 6)
     Route: 042
     Dates: start: 20170125, end: 20170125
  49. ALOXI [Concomitant]
     Active Substance: PALONOSETRON HYDROCHLORIDE
     Dosage: 0.25 MG, ONCE
     Route: 042
     Dates: start: 20161101, end: 20161101
  50. PANTOLINE TABLETS [Concomitant]
     Dosage: 20 MG, QD
     Route: 048
     Dates: start: 20161122, end: 20161219
  51. ADRIAMYCIN [Concomitant]
     Active Substance: DOXORUBICIN HYDROCHLORIDE
     Indication: CHEMOTHERAPY
     Dosage: 52.8 MG, ONCE (CYCLE 1)
     Route: 042
     Dates: start: 20161013, end: 20161013
  52. ADRIAMYCIN [Concomitant]
     Active Substance: DOXORUBICIN HYDROCHLORIDE
     Dosage: 52.8 MG, ONCE (CYCLE 5)
     Route: 042
     Dates: start: 20170104, end: 20170104
  53. ENDOXAN [Concomitant]
     Active Substance: CYCLOPHOSPHAMIDE
     Indication: CHEMOTHERAPY
     Dosage: 1170 MG, ONCE (CYCLE 1)
     Route: 042
     Dates: start: 20161012, end: 20161012
  54. ENDOXAN [Concomitant]
     Active Substance: CYCLOPHOSPHAMIDE
     Dosage: 1170 MG, ONCE (CYCLE 6)
     Route: 042
     Dates: start: 20170125, end: 20170125
  55. VINCRISTINE SULFATE. [Concomitant]
     Active Substance: VINCRISTINE SULFATE
     Dosage: 2 MG, ONCE (CYCLE 5)
     Route: 042
     Dates: start: 20170104, end: 20170104
  56. DEXAMETHASONE SODIUM PHOSPHATE. [Concomitant]
     Active Substance: DEXAMETHASONE SODIUM PHOSPHATE
     Indication: ANTIEMETIC SUPPORTIVE CARE
     Dosage: 40 MG, QD (STRENGTH: 5MG/ML)
     Route: 042
     Dates: start: 20161011, end: 20161014
  57. DEXAMETHASONE SODIUM PHOSPHATE. [Concomitant]
     Active Substance: DEXAMETHASONE SODIUM PHOSPHATE
     Dosage: 8 MG, ONCE (STRENGTH: 5MG/ML)
     Route: 042
     Dates: start: 20161015, end: 20161015
  58. ALOXI [Concomitant]
     Active Substance: PALONOSETRON HYDROCHLORIDE
     Dosage: 0.25 MG, ONCE
     Route: 042
     Dates: start: 20170104, end: 20170104
  59. PANTOLINE TABLETS [Concomitant]
     Indication: PROPHYLAXIS
     Dosage: 20 MG, QD
     Route: 048
     Dates: start: 20161011, end: 20161106
  60. FEROBA [Concomitant]
     Active Substance: FERROUS SULFATE\PROTEASE
     Indication: ANAEMIA
     Dosage: 1 TABLET, BID
     Route: 048
  61. SOLONDO [Concomitant]
     Active Substance: PREDNISOLONE
     Dosage: 20 TABLET, QD
     Route: 048
     Dates: start: 20170125, end: 20170129

REACTIONS (9)
  - Herpes zoster [Recovered/Resolved]
  - Nausea [Recovered/Resolved]
  - Neutropenia [Recovered/Resolved]
  - Neutropenia [Recovered/Resolved]
  - Diarrhoea [Recovered/Resolved]
  - Diarrhoea [Recovered/Resolved]
  - Influenza [Recovered/Resolved]
  - Nausea [Recovered/Resolved]
  - Asthenia [Recovered/Resolved]

NARRATIVE: CASE EVENT DATE: 20161017
